FAERS Safety Report 17807391 (Version 3)
Quarter: 2020Q3

REPORT INFORMATION
  Report Type: Report from Study
  Country: US (occurrence: US)
  Receive Date: 20200520
  Receipt Date: 20200701
  Transmission Date: 20201102
  Serious: Yes (Death, Life-Threatening)
  Sender: FDA-Public Use
  Company Number: US-SA-2020SA095069

PATIENT

DRUGS (15)
  1. METHYLPREDNISOLONE. [Concomitant]
     Active Substance: METHYLPREDNISOLONE
     Dosage: 40 MG, BID
     Route: 042
     Dates: start: 20200405, end: 20200409
  2. HYDROXYCHLOROQUINE [Concomitant]
     Active Substance: HYDROXYCHLOROQUINE
     Indication: MALARIA
     Dosage: 400 MG, BID
     Route: 048
     Dates: start: 20200401, end: 20200401
  3. MEROPENEM. [Concomitant]
     Active Substance: MEROPENEM
     Indication: ACUTE RESPIRATORY FAILURE
     Dosage: 2 G, TID
     Route: 042
     Dates: start: 20200411, end: 20200414
  4. AZITHROMYCIN ANHYDROUS. [Concomitant]
     Active Substance: AZITHROMYCIN ANHYDROUS
     Dosage: 250 MG, QD
     Route: 048
     Dates: start: 20200401, end: 20200404
  5. CEFEPIME [Concomitant]
     Active Substance: CEFEPIME HYDROCHLORIDE
     Indication: ACUTE RESPIRATORY FAILURE
     Dosage: 2000 MG, BID
     Route: 042
     Dates: start: 20200407, end: 20200409
  6. METHYLPREDNISOLONE. [Concomitant]
     Active Substance: METHYLPREDNISOLONE
     Indication: ACUTE RESPIRATORY FAILURE
     Dosage: 125 MG, BID
     Route: 042
     Dates: start: 20200403, end: 20200403
  7. METHYLPREDNISOLONE. [Concomitant]
     Active Substance: METHYLPREDNISOLONE
     Dosage: 20 MG UNK
     Route: 042
     Dates: start: 20200409, end: 20200411
  8. TYLENOL [Concomitant]
     Active Substance: ACETAMINOPHEN
     Indication: PYREXIA
     Dosage: 650 MG, TID, NG
     Route: 050
     Dates: start: 20200407
  9. METHYLPREDNISOLONE. [Concomitant]
     Active Substance: METHYLPREDNISOLONE
     Dosage: 20 MG, QD
     Route: 042
     Dates: start: 20200412, end: 20200412
  10. METHYLPREDNISOLONE. [Concomitant]
     Active Substance: METHYLPREDNISOLONE
     Dosage: 10 MG, QD
     Route: 042
     Dates: start: 20200413, end: 20200416
  11. AZITHROMYCIN ANHYDROUS. [Concomitant]
     Active Substance: AZITHROMYCIN ANHYDROUS
     Indication: CORONAVIRUS INFECTION
     Dosage: 500 MG, OTO
     Route: 042
     Dates: start: 20200331, end: 20200331
  12. HYDROXYCHLOROQUINE [Concomitant]
     Active Substance: HYDROXYCHLOROQUINE
     Dosage: 200 MG, BID
     Route: 048
     Dates: start: 20200401, end: 20200405
  13. SARILUMAB [Suspect]
     Active Substance: SARILUMAB
     Indication: COVID-19
     Dosage: 200 MG INJECTION
     Route: 042
     Dates: start: 20200403, end: 20200403
  14. METHYLPREDNISOLONE. [Concomitant]
     Active Substance: METHYLPREDNISOLONE
     Dosage: 60 MG, BID
     Route: 042
     Dates: start: 20200403, end: 20200405
  15. VANCOMYCIN [Concomitant]
     Active Substance: VANCOMYCIN
     Indication: ANTIBIOTIC THERAPY
     Dosage: 1000 MG, BID
     Route: 042
     Dates: start: 20200409, end: 20200411

REACTIONS (6)
  - Aspartate aminotransferase increased [Recovered/Resolved]
  - Alanine aminotransferase increased [Recovered/Resolved]
  - Pneumonia pseudomonal [Not Recovered/Not Resolved]
  - Pneumothorax [Recovered/Resolved]
  - Acute respiratory failure [Fatal]
  - Pseudomonal bacteraemia [Not Recovered/Not Resolved]

NARRATIVE: CASE EVENT DATE: 20200409
